FAERS Safety Report 12802525 (Version 1)
Quarter: 2016Q4

REPORT INFORMATION
  Report Type: Spontaneous
  Country: US (occurrence: US)
  Receive Date: 20161001
  Receipt Date: 20161001
  Transmission Date: 20170207
  Serious: Yes (Hospitalization)
  Sender: FDA-Public Use
  Company Number: None

PATIENT
  Age: 70 Year
  Sex: Male
  Weight: 86.26 kg

DRUGS (7)
  1. QLINAPRIL [Concomitant]
  2. TOUJEO [Concomitant]
     Active Substance: INSULIN GLARGINE
  3. INVOKANA [Suspect]
     Active Substance: CANAGLIFLOZIN
     Indication: DIABETES MELLITUS
     Route: 048
  4. JANUMET [Concomitant]
     Active Substance: METFORMIN HYDROCHLORIDE\SITAGLIPTIN PHOSPHATE
  5. GLIMEPRIDE [Concomitant]
     Active Substance: GLIMEPIRIDE
  6. ELIQUIS [Concomitant]
     Active Substance: APIXABAN
  7. CLOPIDOGREL BI UF [Concomitant]

REACTIONS (2)
  - Skin discolouration [None]
  - Toe amputation [None]

NARRATIVE: CASE EVENT DATE: 20160509
